FAERS Safety Report 20800830 (Version 2)
Quarter: 2022Q2

REPORT INFORMATION
  Report Type: Spontaneous
  Country: IE (occurrence: IE)
  Receive Date: 20220509
  Receipt Date: 20220530
  Transmission Date: 20220721
  Serious: Yes (Hospitalization, Disabling, Other)
  Sender: FDA-Public Use
  Company Number: GB-Crescent Pharma Limited-AG202203-000045

PATIENT
  Age: 24 Year
  Sex: Male

DRUGS (12)
  1. MIRTAZAPINE [Suspect]
     Active Substance: MIRTAZAPINE
     Indication: Antidepressant therapy
     Dosage: 45 MILLIGRAM(45 MILLIGRAM (7.5MG-UPTITRATED YO 45MG DAILY THEN), FILM COATED TABLET
     Route: 048
     Dates: start: 2014, end: 2015
  2. MIRTAZAPINE [Suspect]
     Active Substance: MIRTAZAPINE
     Dosage: 7.5 MILLIGRAM, ONCE A DAY, FILM COATED TABLET
     Route: 048
     Dates: start: 2014, end: 2015
  3. SERTRALINE [Suspect]
     Active Substance: SERTRALINE HYDROCHLORIDE
     Indication: Homicidal ideation
     Dosage: 100 MILLIGRAM, UNK
     Route: 048
     Dates: start: 2014
  4. SERTRALINE [Suspect]
     Active Substance: SERTRALINE HYDROCHLORIDE
     Indication: Antidepressant therapy
     Dosage: 50 MILLIGRAM
     Route: 048
     Dates: start: 2014
  5. TEMAZEPAM [Suspect]
     Active Substance: TEMAZEPAM
     Indication: Poor quality sleep
     Dosage: 10 MILLIGRAM, ONCE A DAY
     Route: 048
  6. CITALOPRAM [Suspect]
     Active Substance: CITALOPRAM HYDROBROMIDE
     Indication: Ill-defined disorder
     Dosage: 10 MILLIGRAM, UNK, 10 MG INITIALLY
     Route: 048
     Dates: start: 201507, end: 201509
  7. ESCITALOPRAM [Suspect]
     Active Substance: ESCITALOPRAM OXALATE
     Indication: Antidepressant therapy
     Dosage: 10 MILLIGRAM, ONCE A DAY
     Route: 048
  8. ESCITALOPRAM [Suspect]
     Active Substance: ESCITALOPRAM OXALATE
     Dosage: 10 MILLIGRAM, ONCE A DAY
     Route: 065
     Dates: start: 201509, end: 201509
  9. CIPRALEX [Suspect]
     Active Substance: ESCITALOPRAM OXALATE
     Indication: Antidepressant therapy
     Dosage: 10 MILLIGRAM, ONCE A DAY
     Route: 048
     Dates: start: 201507, end: 201509
  10. RISPERDAL [Suspect]
     Active Substance: RISPERIDONE
     Indication: Ill-defined disorder
     Dosage: UNK
     Route: 048
  11. TRAZODONE HYDROCHLORIDE [Suspect]
     Active Substance: TRAZODONE HYDROCHLORIDE
     Indication: Poor quality sleep
     Dosage: 100 MILLIGRAM, QD (INCREASED TO 100 MG DAILY THEN REDUCED TO 50MG BEFORE STOPPING)
     Route: 048
     Dates: start: 2015, end: 201507
  12. TRAZODONE HYDROCHLORIDE [Suspect]
     Active Substance: TRAZODONE HYDROCHLORIDE
     Indication: Antidepressant therapy
     Dosage: 50 MILLIGRAM
     Route: 048
     Dates: start: 2015, end: 201507

REACTIONS (26)
  - Insomnia [Unknown]
  - Tachyphrenia [Unknown]
  - Anger [Unknown]
  - Off label use [Unknown]
  - Nausea [Unknown]
  - Hallucination, visual [Unknown]
  - Headache [Unknown]
  - Feeling abnormal [Unknown]
  - Product use in unapproved indication [Unknown]
  - Withdrawal syndrome [Unknown]
  - Sedation [Unknown]
  - Paranoia [Unknown]
  - Intrusive thoughts [Unknown]
  - Amnesia [Unknown]
  - Aggression [Unknown]
  - Suicidal ideation [Unknown]
  - Suicide attempt [Unknown]
  - Psychotic disorder [Unknown]
  - Agitation [Unknown]
  - Confusional state [Unknown]
  - Mood swings [Unknown]
  - Hallucination, auditory [Unknown]
  - Irritability [Unknown]
  - Homicidal ideation [Unknown]
  - Loss of libido [Unknown]
  - Somnolence [Unknown]
